FAERS Safety Report 11188805 (Version 1)
Quarter: 2015Q2

REPORT INFORMATION
  Report Type: Spontaneous
  Country: US (occurrence: None)
  Receive Date: 20150611
  Receipt Date: 20150611
  Transmission Date: 20150821
  Serious: Yes (Hospitalization)
  Sender: FDA-Public Use
  Company Number: INS201506-000229

PATIENT
  Sex: Male
  Weight: 89.81 kg

DRUGS (1)
  1. SUBSYS [Suspect]
     Active Substance: FENTANYL
     Dosage: EVERY 2 HOURS

REACTIONS (1)
  - Malignant neoplasm progression [None]
